FAERS Safety Report 6620301-6 (Version None)
Quarter: 2010Q1

REPORT INFORMATION
  Report Type: 
  Country: None (occurrence: None)
  Receive Date: 20100308
  Receipt Date: 20100308
  Transmission Date: 20100710
  Serious: No
  Sender: FDA-Public Use
  Company Number: None

PATIENT
  Age: 50 Year
  Sex: Male
  Weight: 90.7194 kg

DRUGS (2)
  1. CYMBALTA [Suspect]
     Indication: ANXIETY
     Dosage: 60 -120 MG ONCE PER DAY PO
     Route: 048
     Dates: start: 20090801, end: 20091115
  2. CYMBALTA [Suspect]
     Indication: DEPRESSION
     Dosage: 60 -120 MG ONCE PER DAY PO
     Route: 048
     Dates: start: 20090801, end: 20091115

REACTIONS (7)
  - EXOSTOSIS [None]
  - NEUROPATHY PERIPHERAL [None]
  - OSTEOARTHRITIS [None]
  - PAIN [None]
  - PARAESTHESIA [None]
  - RENAL DISORDER [None]
  - TINNITUS [None]
